FAERS Safety Report 6689862-5 (Version None)
Quarter: 2010Q2

REPORT INFORMATION
  Report Type: 
  Country: None (occurrence: None)
  Receive Date: 20100421
  Receipt Date: 20100412
  Transmission Date: 20101027
  Serious: Yes (Hospitalization)
  Sender: FDA-Public Use
  Company Number: FR-JNJFOC-20100402670

PATIENT
  Age: 71 Year
  Sex: Female

DRUGS (7)
  1. RISPERDAL [Suspect]
     Indication: DRUG USE FOR UNKNOWN INDICATION
     Route: 048
  2. LASIX [Interacting]
     Indication: DRUG USE FOR UNKNOWN INDICATION
     Route: 048
  3. ZESTORETIC [Interacting]
     Indication: DRUG USE FOR UNKNOWN INDICATION
     Dosage: 20MG/12.5MG DAILY
     Route: 048
  4. LECTIL [Concomitant]
     Indication: DRUG USE FOR UNKNOWN INDICATION
     Route: 065
  5. TEGRETOL [Concomitant]
     Indication: DRUG USE FOR UNKNOWN INDICATION
     Route: 065
  6. ZOLPIDEM [Concomitant]
     Indication: DRUG USE FOR UNKNOWN INDICATION
     Route: 065
  7. LEXOMIL [Concomitant]
     Indication: DRUG USE FOR UNKNOWN INDICATION
     Route: 065

REACTIONS (8)
  - DRUG INTERACTION [None]
  - DYSURIA [None]
  - GENERAL PHYSICAL HEALTH DETERIORATION [None]
  - HEADACHE [None]
  - HYPOTENSION [None]
  - POLLAKIURIA [None]
  - URINARY INCONTINENCE [None]
  - VERTIGO [None]
